FAERS Safety Report 13639535 (Version 1)
Quarter: 2017Q2

REPORT INFORMATION
  Report Type: Spontaneous
  Country: US (occurrence: US)
  Receive Date: 20170609
  Receipt Date: 20170609
  Transmission Date: 20170830
  Serious: No
  Sender: FDA-Public Use
  Company Number: US-ROCHE-1338927

PATIENT
  Age: 2 Year
  Sex: Female
  Weight: 9 kg

DRUGS (1)
  1. CLONAZEPAM. [Suspect]
     Active Substance: CLONAZEPAM
     Indication: EPILEPSY
     Dosage: INCREMENTS OF 0.5 MG WERE ADDED EVERY FEW DAYS UNTIL MAXIRNAL TOLERATED DOSE LEVEL WAS REACHED
     Route: 065

REACTIONS (2)
  - Accidental overdose [Unknown]
  - Somnolence [Unknown]
